FAERS Safety Report 10936810 (Version 2)
Quarter: 2015Q2

REPORT INFORMATION
  Report Type: Spontaneous
  Country: US (occurrence: US)
  Receive Date: 20150321
  Receipt Date: 20150525
  Transmission Date: 20150821
  Serious: No
  Sender: FDA-Public Use
  Company Number: US-JNJFOC-20140312557

PATIENT
  Sex: Male

DRUGS (2)
  1. TRAZODONE [Suspect]
     Active Substance: TRAZODONE HYDROCHLORIDE
     Indication: SLEEP DISORDER THERAPY
     Route: 065
  2. TOPAMAX [Suspect]
     Active Substance: TOPIRAMATE
     Indication: DRUG DEPENDENCE
     Route: 048

REACTIONS (4)
  - Product use issue [Unknown]
  - Drug ineffective for unapproved indication [Unknown]
  - Food craving [Not Recovered/Not Resolved]
  - Insomnia [Not Recovered/Not Resolved]
